FAERS Safety Report 12039037 (Version 1)
Quarter: 2016Q1

REPORT INFORMATION
  Report Type: Spontaneous
  Country: US (occurrence: None)
  Receive Date: 20160205
  Receipt Date: 20160205
  Transmission Date: 20160526
  Serious: Yes (Hospitalization)
  Sender: FDA-Public Use
  Company Number: None

PATIENT
  Age: 65 Year
  Sex: Male
  Weight: 94.3 kg

DRUGS (17)
  1. ATORVASTATIN [Concomitant]
     Active Substance: ATORVASTATIN
  2. ISOSORBIDE MONONITRATE. [Concomitant]
     Active Substance: ISOSORBIDE MONONITRATE
  3. FLUTICASONE [Concomitant]
     Active Substance: FLUTICASONE\FLUTICASONE PROPIONATE
  4. METOLAZONE. [Concomitant]
     Active Substance: METOLAZONE
  5. FUROSEMIDE. [Concomitant]
     Active Substance: FUROSEMIDE
  6. INSULIN [Concomitant]
     Active Substance: INSULIN NOS
  7. SERTRALINE [Concomitant]
     Active Substance: SERTRALINE HYDROCHLORIDE
  8. HARVONI [Suspect]
     Active Substance: LEDIPASVIR\SOFOSBUVIR
     Indication: CHRONIC HEPATITIS C
     Dosage: 90MG/400MG QD ORAL
     Route: 048
     Dates: start: 20150609, end: 20151124
  9. AMLODIPINE [Concomitant]
     Active Substance: AMLODIPINE BESYLATE
  10. GABAPENTIN. [Concomitant]
     Active Substance: GABAPENTIN
  11. PREDNISONE. [Concomitant]
     Active Substance: PREDNISONE
  12. OMEPRAZOLE. [Concomitant]
     Active Substance: OMEPRAZOLE
  13. BUDESONIDE-FORMOTEROL [Concomitant]
     Active Substance: BUDESONIDE\FORMOTEROL
  14. IPRATROPIUM [Concomitant]
     Active Substance: IPRATROPIUM
  15. ALBUTEROL. [Concomitant]
     Active Substance: ALBUTEROL
  16. ASPIRIN. [Concomitant]
     Active Substance: ASPIRIN
  17. NITROGLYCERIN. [Concomitant]
     Active Substance: NITROGLYCERIN

REACTIONS (2)
  - Headache [None]
  - Hypertensive crisis [None]

NARRATIVE: CASE EVENT DATE: 20150901
